FAERS Safety Report 26087881 (Version 1)
Quarter: 2025Q4

REPORT INFORMATION
  Report Type: Spontaneous
  Country: CN (occurrence: CN)
  Receive Date: 20251125
  Receipt Date: 20251125
  Transmission Date: 20260118
  Serious: Yes (Other)
  Sender: ROCHE
  Company Number: CN-ROCHE-10000439684

PATIENT
  Age: 62 Year
  Sex: Female

DRUGS (3)
  1. ATEZOLIZUMAB [Suspect]
     Active Substance: ATEZOLIZUMAB
     Indication: Pancreatic carcinoma
     Route: 042
     Dates: start: 20251029, end: 20251029
  2. FLUOROURACIL [Suspect]
     Active Substance: FLUOROURACIL
     Indication: Pancreatic carcinoma
     Route: 042
     Dates: start: 20251030, end: 20251030
  3. IRINOTECAN HYDROCHLORIDE [Suspect]
     Active Substance: IRINOTECAN HYDROCHLORIDE
     Indication: Pancreatic carcinoma
     Route: 042
     Dates: start: 20251030, end: 20251030

REACTIONS (3)
  - Platelet count decreased [Recovering/Resolving]
  - Haemoglobin decreased [Recovering/Resolving]
  - Off label use [Unknown]

NARRATIVE: CASE EVENT DATE: 20251106
